FAERS Safety Report 4388434-5 (Version None)
Quarter: 2004Q2

REPORT INFORMATION
  Report Type: 
  Country: None (occurrence: None)
  Receive Date: 20040625
  Receipt Date: 20040616
  Transmission Date: 20050107
  Serious: Yes (Other)
  Sender: FDA-Public Use
  Company Number: HQWYE518318JUN04

PATIENT
  Age: 3 Year
  Sex: Female

DRUGS (2)
  1. CHILDREN'S ADVIL [Suspect]
     Indication: PYREXIA
     Dosage: 1 UNSPECIFIED DOSE
     Route: 048
     Dates: start: 20040615, end: 20040615
  2. TYLENOL [Concomitant]

REACTIONS (2)
  - EYE SWELLING [None]
  - HYPERSENSITIVITY [None]
